FAERS Safety Report 9369648 (Version 1)
Quarter: 2013Q2

REPORT INFORMATION
  Report Type: Spontaneous
  Country: US (occurrence: US)
  Receive Date: 20130626
  Receipt Date: 20130626
  Transmission Date: 20140414
  Serious: No
  Sender: FDA-Public Use
  Company Number: US-PFIZER INC-2013186938

PATIENT
  Age: 75 Year
  Sex: Female
  Weight: 72.1 kg

DRUGS (12)
  1. INLYTA [Suspect]
     Indication: RENAL CANCER
     Dosage: 5 MG, 2X/DAY
     Route: 048
     Dates: start: 20130329, end: 2013
  2. INLYTA [Suspect]
     Dosage: 5 MG, 1X/DAY
     Route: 048
     Dates: start: 2013, end: 2013
  3. INLYTA [Suspect]
     Dosage: 5 MG, EVERY ALTERNATE NIGHT
     Route: 048
     Dates: start: 2013
  4. AMLODIPINE [Concomitant]
     Dosage: UNK
  5. ASPIRIN [Concomitant]
     Dosage: UNK
  6. BIMATOPROST [Concomitant]
     Dosage: UNK
     Route: 047
  7. ALPHAGAN P [Concomitant]
     Dosage: UNK
     Route: 047
  8. AZOPT [Concomitant]
     Dosage: UNK
     Route: 047
  9. SYNTHROID [Concomitant]
     Dosage: UNK
  10. HYZAAR [Concomitant]
     Dosage: UNK
  11. PROPRANOLOL [Concomitant]
     Dosage: UNK
  12. CARVEDILOL [Concomitant]
     Dosage: UNK
     Dates: end: 2013

REACTIONS (2)
  - Dystonia [Unknown]
  - Blood creatinine increased [Unknown]
